FAERS Safety Report 8209385-1 (Version None)
Quarter: 2012Q1

REPORT INFORMATION
  Report Type: 
  Country: None (occurrence: None)
  Receive Date: 20120314
  Receipt Date: 20120307
  Transmission Date: 20120608
  Serious: Yes (Hospitalization, Other)
  Sender: FDA-Public Use
  Company Number: US-BAYER-2012-013588

PATIENT
  Age: 35 Year
  Sex: Female
  Weight: 90 kg

DRUGS (16)
  1. EFFEXOR [Concomitant]
     Indication: DEPRESSION
     Dosage: UNK
     Dates: start: 20060101
  2. ZANTAC [Concomitant]
  3. YAZ [Suspect]
     Dosage: UNK
     Dates: start: 20090401, end: 20091101
  4. HYDROCODONE BITARTRATE AND ACETAMINOPHEN [Concomitant]
     Indication: ARTHRALGIA
     Dosage: UNK
     Dates: start: 20060101
  5. PRAVASTATIN [Concomitant]
     Indication: BLOOD CHOLESTEROL INCREASED
     Dosage: UNK
  6. NEURONTIN [Concomitant]
     Dosage: UNK
     Dates: start: 20100101
  7. BUSPIRONE HCL [Concomitant]
     Dosage: UNK
     Dates: start: 20100101
  8. TYLENOL [Concomitant]
  9. COUMADIN [Concomitant]
     Dosage: UNK
     Dates: start: 20100101
  10. LEVOTHYROXINE SODIUM [Concomitant]
     Indication: THYROID DISORDER
     Dosage: UNK
  11. COUMADIN [Concomitant]
     Indication: ANTICOAGULANT THERAPY
     Dosage: UNK
     Dates: start: 20090101, end: 20100101
  12. MOTRIN [Concomitant]
     Indication: HEADACHE
     Dosage: UNK
  13. NEURONTIN [Concomitant]
     Dosage: 600 MG, UNK
     Dates: start: 20100101
  14. FISH OIL [Concomitant]
     Indication: BLOOD CHOLESTEROL ABNORMAL
  15. PREVACID [Concomitant]
  16. TOPAMAX [Concomitant]

REACTIONS (4)
  - CEREBRAL THROMBOSIS [None]
  - SUPERIOR SAGITTAL SINUS THROMBOSIS [None]
  - HEADACHE [None]
  - EYE DISORDER [None]
